FAERS Safety Report 9181609 (Version 2)
Quarter: 2013Q2

REPORT INFORMATION
  Report Type: Spontaneous
  Country: US (occurrence: US)
  Receive Date: 20130322
  Receipt Date: 20130509
  Transmission Date: 20140414
  Serious: Yes (Death, Other)
  Sender: FDA-Public Use
  Company Number: US-PFIZER INC-2013092837

PATIENT
  Age: 30 Year
  Sex: Male

DRUGS (2)
  1. CHANTIX [Suspect]
     Indication: SMOKING CESSATION THERAPY
     Dosage: UNK
     Route: 048
     Dates: start: 20070507, end: 20111018
  2. CHANTIX [Suspect]
     Dosage: STARTING MONTH PACK ONE TABLET
     Route: 048
     Dates: start: 20110111

REACTIONS (1)
  - Completed suicide [Fatal]
